FAERS Safety Report 20542914 (Version 1)
Quarter: 2022Q1

REPORT INFORMATION
  Report Type: Spontaneous
  Country: US (occurrence: US)
  Receive Date: 20220302
  Receipt Date: 20220302
  Transmission Date: 20220424
  Serious: No
  Sender: FDA-Public Use
  Company Number: US-PERRIGO-21US030012

PATIENT
  Age: 16 Year
  Sex: Female
  Weight: 49.887 kg

DRUGS (2)
  1. SCOPOLAMINE [Suspect]
     Active Substance: SCOPOLAMINE
     Indication: Product used for unknown indication
     Dosage: 1 PATCH, SINGLE
     Route: 062
     Dates: start: 20211020, end: 20211020
  2. SCOPOLAMINE [Suspect]
     Active Substance: SCOPOLAMINE
     Dosage: UNKNOWN, SINGLE
     Route: 047
     Dates: start: 20211021, end: 20211021

REACTIONS (3)
  - Vision blurred [Not Recovered/Not Resolved]
  - Hypermetropia [Not Recovered/Not Resolved]
  - Accidental exposure to product [Recovered/Resolved]

NARRATIVE: CASE EVENT DATE: 20211021
